FAERS Safety Report 15322366 (Version 1)
Quarter: 2018Q3

REPORT INFORMATION
  Report Type: Spontaneous
  Country: US (occurrence: US)
  Receive Date: 20180821
  Receipt Date: 20180821
  Transmission Date: 20181010
  Serious: Yes (Disabling)
  Sender: FDA-Public Use
  Company Number: None

PATIENT
  Age: 79 Year
  Sex: Female
  Weight: 52.62 kg

DRUGS (16)
  1. NAPROXEN. [Suspect]
     Active Substance: NAPROXEN
     Indication: ARTHRALGIA
     Dosage: ?          QUANTITY:1 DF DOSAGE FORM;?
     Route: 048
     Dates: start: 20180414, end: 20180629
  2. NIACIN. [Concomitant]
     Active Substance: NIACIN
  3. MAGNESIUM [Concomitant]
     Active Substance: MAGNESIUM
  4. NAPROXEN. [Suspect]
     Active Substance: NAPROXEN
     Indication: FEMUR FRACTURE
     Dosage: ?          QUANTITY:1 DF DOSAGE FORM;?
     Route: 048
     Dates: start: 20180414, end: 20180629
  5. NAPROXEN. [Suspect]
     Active Substance: NAPROXEN
     Indication: PAIN IN EXTREMITY
     Dosage: ?          QUANTITY:1 DF DOSAGE FORM;?
     Route: 048
     Dates: start: 20180414, end: 20180629
  6. FOLIC ACID. [Concomitant]
     Active Substance: FOLIC ACID
  7. NAPROXEN. [Suspect]
     Active Substance: NAPROXEN
     Indication: COCCYDYNIA
     Dosage: ?          QUANTITY:1 DF DOSAGE FORM;?
     Route: 048
     Dates: start: 20180414, end: 20180629
  8. ELIQUIS [Concomitant]
     Active Substance: APIXABAN
  9. DONEPEZIL. [Concomitant]
     Active Substance: DONEPEZIL
  10. NAPROXEN. [Concomitant]
     Active Substance: NAPROXEN
  11. CALCIUM [Concomitant]
     Active Substance: CALCIUM
  12. VITAMIN D3 [Concomitant]
     Active Substance: CHOLECALCIFEROL
  13. OCUVITE SOFT GEL [Concomitant]
  14. NAPROXEN. [Suspect]
     Active Substance: NAPROXEN
     Indication: FALL
     Dosage: ?          QUANTITY:1 DF DOSAGE FORM;?
     Route: 048
     Dates: start: 20180414, end: 20180629
  15. VITAMIN B12 [Concomitant]
     Active Substance: CYANOCOBALAMIN
  16. ATENOLOL. [Concomitant]
     Active Substance: ATENOLOL

REACTIONS (3)
  - Dermatitis allergic [None]
  - Erythema [None]
  - Rash macular [None]

NARRATIVE: CASE EVENT DATE: 20180515
